FAERS Safety Report 8233997-2 (Version None)
Quarter: 2012Q1

REPORT INFORMATION
  Report Type: 
  Country: None (occurrence: None)
  Receive Date: 20120326
  Receipt Date: 20120319
  Transmission Date: 20120608
  Serious: Yes (Death)
  Sender: FDA-Public Use
  Company Number: RU-SANOFI-AVENTIS-2010SA001714

PATIENT
  Age: 60 Year
  Sex: Male
  Weight: 96 kg

DRUGS (5)
  1. PREDNISOLONE [Suspect]
     Route: 048
     Dates: start: 20080606, end: 20100103
  2. PLACEBO [Suspect]
     Route: 042
     Dates: start: 20091224, end: 20091224
  3. DOCETAXEL [Suspect]
     Route: 042
     Dates: start: 20080606, end: 20080606
  4. PLACEBO [Suspect]
     Route: 042
     Dates: start: 20080606, end: 20080606
  5. DOCETAXEL [Suspect]
     Route: 042
     Dates: start: 20091224, end: 20091224

REACTIONS (1)
  - PULMONARY EMBOLISM [None]
